FAERS Safety Report 17039306 (Version 5)
Quarter: 2020Q1

REPORT INFORMATION
  Report Type: Spontaneous
  Country: US (occurrence: US)
  Receive Date: 20191115
  Receipt Date: 20200320
  Transmission Date: 20200409
  Serious: Yes (Other)
  Sender: FDA-Public Use
  Company Number: US-009507513-1911USA005421

PATIENT
  Age: 32 Year
  Sex: Female
  Weight: 58.96 kg

DRUGS (8)
  1. FOLLISTIM AQ [Suspect]
     Active Substance: FOLLITROPIN
     Indication: CONTROLLED OVARIAN STIMULATION
  2. FOLLISTIM AQ [Suspect]
     Active Substance: FOLLITROPIN
     Dosage: 300 INTERNATIONAL UNIT, QD
     Dates: start: 20191112
  3. FOLLISTIM AQ [Suspect]
     Active Substance: FOLLITROPIN
     Indication: ASSISTED FERTILISATION
     Dosage: 75 IU INTERNATIONAL UNIT(S), QD
     Route: 058
     Dates: start: 201911
  4. VITAMIN D (UNSPECIFIED) [Concomitant]
     Active Substance: VITAMIN D NOS
     Dosage: UNK
  5. FOLLISTIM AQ [Suspect]
     Active Substance: FOLLITROPIN
     Indication: INFERTILITY FEMALE
     Dosage: 75 INTERNATIONAL UNIT, QD
     Route: 058
     Dates: start: 201902
  6. FOLLISTIM AQ [Suspect]
     Active Substance: FOLLITROPIN
     Indication: CONTROLLED OVARIAN STIMULATION
     Dosage: 150 INTERNATIONAL UNIT
     Dates: start: 20191107
  7. FOLLISTIM AQ [Suspect]
     Active Substance: FOLLITROPIN
     Indication: ASSISTED FERTILISATION
     Dosage: 150 INTERNATIONAL UNIT
     Dates: start: 2019
  8. FOLLISTIM AQ [Suspect]
     Active Substance: FOLLITROPIN
     Indication: INFERTILITY FEMALE
     Dosage: 150 - 300 IU, QD
     Route: 058
     Dates: start: 20191107, end: 20191122

REACTIONS (12)
  - Therapeutic response decreased [Recovered/Resolved]
  - Injection site haemorrhage [Recovered/Resolved]
  - Injection site papule [Recovering/Resolving]
  - Headache [Recovered/Resolved]
  - Liquid product physical issue [Unknown]
  - Injection site haemorrhage [Recovered/Resolved]
  - Rash [Recovered/Resolved]
  - Injection site haemorrhage [Recovering/Resolving]
  - Headache [Recovered/Resolved]
  - Rash [Recovered/Resolved]
  - Abortion spontaneous [Recovered/Resolved]
  - Exposure during pregnancy [Recovered/Resolved]

NARRATIVE: CASE EVENT DATE: 201902
